FAERS Safety Report 12232265 (Version 3)
Quarter: 2016Q2

REPORT INFORMATION
  Report Type: Report from Study
  Country: US (occurrence: US)
  Receive Date: 20160401
  Receipt Date: 20160427
  Transmission Date: 20160815
  Serious: Yes (Death, Other)
  Sender: FDA-Public Use
  Company Number: US-JNJFOC-20160328962

PATIENT
  Sex: Male

DRUGS (3)
  1. PREZISTA [Suspect]
     Active Substance: DARUNAVIR ETHANOLATE
     Indication: HIV INFECTION
     Dosage: ^MOTHER DOSING^
     Route: 048
     Dates: start: 20160113
  2. TRUVADA [Suspect]
     Active Substance: EMTRICITABINE\TENOFOVIR DISOPROXIL FUMARATE
     Indication: HIV INFECTION
     Dosage: ^MOTHER DOSING^
     Route: 048
     Dates: start: 20160113
  3. NORVIR [Suspect]
     Active Substance: RITONAVIR
     Indication: HIV INFECTION
     Dosage: ^MOTHER DOSING^
     Route: 048
     Dates: start: 20160113

REACTIONS (5)
  - Premature baby [Fatal]
  - Cell death [Fatal]
  - Neural tube defect [Unknown]
  - Foetal exposure during pregnancy [Recovered/Resolved]
  - Thymus disorder [Fatal]
